FAERS Safety Report 8410158-5 (Version None)
Quarter: 2012Q2

REPORT INFORMATION
  Report Type: 
  Country: None (occurrence: None)
  Receive Date: 20120605
  Receipt Date: 20120528
  Transmission Date: 20120825
  Serious: Yes (Other)
  Sender: FDA-Public Use
  Company Number: PHHY2012AU042358

PATIENT
  Sex: Male
  Weight: 111.6 kg

DRUGS (7)
  1. ARIPIPRAZOLE [Concomitant]
     Indication: SCHIZOPHRENIA
     Dosage: 30 MG
     Route: 048
     Dates: start: 20120523
  2. COVERSYL PLUS [Concomitant]
     Indication: HYPERTENSION
     Dosage: 5 MG/1.25 MG
     Route: 048
  3. CLOZARIL [Suspect]
     Dosage: 1000 MG
     Route: 048
     Dates: start: 20120528
  4. PALIPERIDONE [Concomitant]
     Indication: SCHIZOPHRENIA
     Dosage: 50 MG (50 MG QUARTERLY, 4 TIMES PER YEAR)
     Route: 030
     Dates: start: 20120523
  5. HYOSCINE HBR HYT [Concomitant]
     Indication: SALIVARY HYPERSECRETION
     Dosage: 300 UG
     Route: 048
  6. CLOZARIL [Suspect]
     Indication: SCHIZOPHRENIA
     Dosage: 1025 MG, UNK
     Route: 048
     Dates: start: 20090428
  7. ATORVASTATIN CALCIUM [Concomitant]
     Indication: DYSLIPIDAEMIA
     Dosage: 20 MG, UNK
     Route: 048

REACTIONS (2)
  - SLEEP APNOEA SYNDROME [None]
  - POLYCYTHAEMIA [None]
